FAERS Safety Report 8767210 (Version 1)
Quarter: 2012Q4

REPORT INFORMATION
  Report Type: 
  Country: US (occurrence: US)
  Receive Date: 20120904
  Receipt Date: 20120904
  Transmission Date: 20130627
  Serious: Yes (Other)
  Sender: FDA-Public Use
  Company Number: US-GLAXOSMITHKLINE-A0991617A

PATIENT
  Age: 83 Year
  Sex: Male

DRUGS (3)
  1. OLUX-E FOAM 0.05% [Suspect]
     Indication: ECZEMA
     Dosage: 1APP Per day
     Route: 061
     Dates: start: 20120829
  2. VITAMIN D [Concomitant]
  3. UNKNOWN MEDICATION [Concomitant]
     Indication: CONSTIPATION

REACTIONS (3)
  - Skin atrophy [Unknown]
  - Laceration [Unknown]
  - Impaired healing [Unknown]
